FAERS Safety Report 6576160-3 (Version None)
Quarter: 2010Q1

REPORT INFORMATION
  Report Type: 
  Country: None (occurrence: None)
  Receive Date: 20100209
  Receipt Date: 20100126
  Transmission Date: 20100710
  Serious: Yes (Other)
  Sender: FDA-Public Use
  Company Number: US-JNJFOC-20100110540

PATIENT
  Age: 54 Year
  Sex: Male
  Weight: 68.04 kg

DRUGS (8)
  1. EXTRA STRENGTH TYLENOL [Suspect]
     Route: 065
  2. EXTRA STRENGTH TYLENOL [Suspect]
     Indication: HEADACHE
     Route: 065
  3. LOMOTIL [Concomitant]
     Indication: DIARRHOEA
     Dosage: 2 PILLS, FOUR TIMES DAILY, FOR LIFE
  4. MEGACE [Concomitant]
     Indication: NEOPLASM MALIGNANT
  5. REMERON [Concomitant]
     Indication: DEPRESSION
  6. OPIUM TINCTURE [Concomitant]
     Indication: DIARRHOEA
  7. IMODIUM [Concomitant]
     Indication: DIARRHOEA
  8. CHEMOTHERAPY [Concomitant]

REACTIONS (3)
  - CLOSTRIDIUM DIFFICILE COLITIS [None]
  - PRODUCT QUALITY ISSUE [None]
  - PYREXIA [None]
